FAERS Safety Report 4864148-X (Version None)
Quarter: 2005Q4

REPORT INFORMATION
  Report Type: 
  Country: None (occurrence: None)
  Receive Date: 20051222
  Receipt Date: 20051220
  Transmission Date: 20060501
  Serious: Yes (Other)
  Sender: FDA-Public Use
  Company Number: US-GLAXOSMITHKLINE-B0404294A

PATIENT
  Age: 18 Year
  Sex: Male

DRUGS (11)
  1. AMOXICILLIN [Suspect]
     Dosage: 1G PER DAY
     Route: 065
  2. CLARITHROMYCIN [Suspect]
     Dosage: 500MG TWICE PER DAY
     Route: 065
  3. FENTANYL [Concomitant]
     Dosage: 2MGK PER DAY
     Route: 065
  4. PROPOFOL [Concomitant]
     Dosage: 3MGK PER DAY
     Route: 065
  5. ISOFLURANE [Concomitant]
     Route: 055
  6. ROCURONIUM BROMIDE [Concomitant]
     Dosage: .7MGK PER DAY
     Route: 065
  7. CLINDAMYCIN [Concomitant]
     Indication: PROPHYLAXIS
     Route: 065
  8. GENTAMICIN SULFATE [Concomitant]
     Indication: PROPHYLAXIS
     Route: 065
  9. KETOROLAC TROMETAMOL [Concomitant]
     Indication: PAIN
     Route: 065
  10. ONDANSETRON HYDROCHLORIDE [Concomitant]
     Route: 065
  11. MORPHINE [Concomitant]
     Route: 065

REACTIONS (5)
  - ACUTE PSYCHOSIS [None]
  - ANXIETY [None]
  - DELUSION [None]
  - HALLUCINATION [None]
  - INSOMNIA [None]
